FAERS Safety Report 5860172-9 (Version None)
Quarter: 2008Q3

REPORT INFORMATION
  Report Type: 
  Country: None (occurrence: None)
  Receive Date: 20080818
  Receipt Date: 20080513
  Transmission Date: 20090109
  Serious: No
  Sender: FDA-Public Use
  Company Number: WAES 0805USA02903

PATIENT
  Age: 62 Year
  Sex: Female

DRUGS (3)
  1. JANUVIA [Suspect]
     Indication: DIABETES MELLITUS
     Dosage: DAILY/PO
     Route: 048
     Dates: start: 20080508, end: 20080511
  2. CRESTOR [Concomitant]
  3. BLOOD THINNER (UNSPECIFIED) [Concomitant]

REACTIONS (5)
  - ABDOMINAL PAIN [None]
  - BACK PAIN [None]
  - FLANK PAIN [None]
  - PAIN IN EXTREMITY [None]
  - WRONG TECHNIQUE IN DRUG USAGE PROCESS [None]
